FAERS Safety Report 8812394 (Version 2)
Quarter: 2014Q3

REPORT INFORMATION
  Report Type: Report from Study
  Country: US (occurrence: US)
  Receive Date: 20120927
  Receipt Date: 20140731
  Transmission Date: 20150326
  Serious: Yes (Hospitalization)
  Sender: FDA-Public Use
  Company Number: US-ROCHE-1096092

PATIENT
  Sex: Female
  Weight: 73.64 kg

DRUGS (4)
  1. ABRAXANE [Concomitant]
     Active Substance: PACLITAXEL
  2. AVASTIN [Suspect]
     Active Substance: BEVACIZUMAB
     Indication: BREAST CANCER FEMALE
     Dosage: DOSE INFUSED: 400MG
     Route: 042
  3. NEUPOGEN [Concomitant]
     Active Substance: FILGRASTIM
     Route: 065
  4. AVASTIN [Suspect]
     Active Substance: BEVACIZUMAB
     Indication: BREAST CANCER METASTATIC

REACTIONS (8)
  - Vomiting [Not Recovered/Not Resolved]
  - Pallor [Unknown]
  - Diabetic coma [Unknown]
  - Asthenia [Not Recovered/Not Resolved]
  - Heart rate irregular [Unknown]
  - Diarrhoea [Unknown]
  - Headache [Unknown]
  - Nausea [Not Recovered/Not Resolved]
